FAERS Safety Report 20923989 (Version 4)
Quarter: 2023Q1

REPORT INFORMATION
  Report Type: Spontaneous
  Country: US (occurrence: US)
  Receive Date: 20220607
  Receipt Date: 20230328
  Transmission Date: 20230417
  Serious: Yes (Other)
  Sender: FDA-Public Use
  Company Number: US-PFIZER INC-202200764701

PATIENT
  Sex: Male

DRUGS (12)
  1. CELECOXIB [Suspect]
     Active Substance: CELECOXIB
     Indication: Rhabdoid tumour of the kidney
     Dosage: 250 MG/M2, 2X/DAY, PO
     Route: 048
  2. CELECOXIB [Suspect]
     Active Substance: CELECOXIB
     Indication: Metastases to bone marrow
  3. BEVACIZUMAB [Suspect]
     Active Substance: BEVACIZUMAB
     Indication: Rhabdoid tumour of the kidney
     Dosage: 5 MG/KG, EVERY 3 WEEKS
  4. BEVACIZUMAB [Suspect]
     Active Substance: BEVACIZUMAB
     Indication: Metastases to bone marrow
  5. ETOPOSIDE [Suspect]
     Active Substance: ETOPOSIDE
     Indication: Rhabdoid tumour of the kidney
     Dosage: 37.5 MG/M2, DAILY (DAYS 1-21)
     Route: 048
  6. ETOPOSIDE [Suspect]
     Active Substance: ETOPOSIDE
     Indication: Metastases to bone marrow
  7. CYCLOPHOSPHAMIDE [Suspect]
     Active Substance: CYCLOPHOSPHAMIDE
     Indication: Rhabdoid tumour of the kidney
     Dosage: 50 MG/M2, DAILY (DAYS 22-42)
     Route: 048
  8. CYCLOPHOSPHAMIDE [Suspect]
     Active Substance: CYCLOPHOSPHAMIDE
     Indication: Metastases to bone marrow
  9. VALPROIC ACID [Suspect]
     Active Substance: VALPROIC ACID
     Indication: Rhabdoid tumour of the kidney
     Dosage: 15 MG/KG, DAILY (DIVIDED INTO TWO DOSES)
  10. VALPROIC ACID [Suspect]
     Active Substance: VALPROIC ACID
     Indication: Metastases to bone marrow
     Dosage: 15 MILLIGRAM/KILOGRAM, QD (DOSE ADJUSTED TO ACHIEVE LEVELS OF 100-150 UG/ML)
     Route: 065
  11. TEMOZOLOMIDE [Suspect]
     Active Substance: TEMOZOLOMIDE
     Indication: Rhabdoid tumour of the kidney
     Dosage: 60 MG/M2, DAILY DAYS 1-21
  12. TEMOZOLOMIDE [Suspect]
     Active Substance: TEMOZOLOMIDE
     Indication: Metastases to bone marrow

REACTIONS (2)
  - Myelodysplastic syndrome [Not Recovered/Not Resolved]
  - Myeloproliferative neoplasm [Not Recovered/Not Resolved]
